FAERS Safety Report 10192821 (Version 1)
Quarter: 2014Q2

REPORT INFORMATION
  Report Type: Spontaneous
  Country: US (occurrence: US)
  Receive Date: 20140523
  Receipt Date: 20140523
  Transmission Date: 20141212
  Serious: Yes (Other)
  Sender: FDA-Public Use
  Company Number: US-SA-2014SA054257

PATIENT
  Age: 62 Year
  Sex: Female

DRUGS (1)
  1. NASACORT ALLERGY [Suspect]
     Indication: HYPERSENSITIVITY
     Dosage: FORM: SPRAY DOSE:1 UNIT(S)
     Route: 065

REACTIONS (6)
  - Volvulus [Unknown]
  - Postoperative wound infection [Unknown]
  - Impaired healing [Unknown]
  - Systemic lupus erythematosus [Unknown]
  - Ocular hyperaemia [Unknown]
  - Eye pruritus [Unknown]
